FAERS Safety Report 8598939-9 (Version None)
Quarter: 2012Q3

REPORT INFORMATION
  Report Type: 
  Country: None (occurrence: None)
  Receive Date: 20120816
  Receipt Date: 20120112
  Transmission Date: 20120928
  Serious: Yes (Hospitalization, Other)
  Sender: FDA-Public Use
  Company Number: US-ROCHE-1101364

PATIENT
  Age: 44 Year
  Sex: Male

DRUGS (1)
  1. ACTIVASE [Suspect]
     Indication: ANGINA UNSTABLE
     Route: 065
     Dates: start: 19930802

REACTIONS (2)
  - DIZZINESS [None]
  - HEARING IMPAIRED [None]
